FAERS Safety Report 4977828-2 (Version None)
Quarter: 2006Q2

REPORT INFORMATION
  Report Type: 
  Country: None (occurrence: None)
  Receive Date: 20060420
  Receipt Date: 20060410
  Transmission Date: 20061013
  Serious: Yes (Hospitalization)
  Sender: FDA-Public Use
  Company Number: PHBS2006JP05475

PATIENT
  Age: 43 Year
  Sex: Male

DRUGS (3)
  1. ZYLORIC [Concomitant]
     Dosage: 2 DF, UNK
     Route: 048
     Dates: end: 20060408
  2. URSO [Concomitant]
     Dosage: 300 MG, UNK
     Route: 048
     Dates: end: 20060408
  3. DIOVAN [Suspect]
     Indication: HYPERTENSION
     Dosage: 40 MG, QD
     Route: 048
     Dates: start: 20060321, end: 20060408

REACTIONS (5)
  - BLOOD CREATININE INCREASED [None]
  - BLOOD PRESSURE SYSTOLIC DECREASED [None]
  - BLOOD UREA INCREASED [None]
  - SHOCK [None]
  - URINARY RETENTION [None]
